FAERS Safety Report 18260937 (Version 1)
Quarter: 2020Q3

REPORT INFORMATION
  Report Type: Spontaneous
  Country: US (occurrence: US)
  Receive Date: 20200914
  Receipt Date: 20200914
  Transmission Date: 20201103
  Serious: Yes (Hospitalization, Other)
  Sender: FDA-Public Use
  Company Number: US-DENTSPLY-2020SCDP000278

PATIENT
  Age: 34 Year
  Sex: Female

DRUGS (12)
  1. CARBAMAZEPINE. [Concomitant]
     Active Substance: CARBAMAZEPINE
     Indication: PAIN MANAGEMENT
     Dosage: 200 MILLIGRAM, TID
     Route: 048
  2. GABAPENTIN. [Concomitant]
     Active Substance: GABAPENTIN
     Indication: PAIN MANAGEMENT
     Dosage: UNK
  3. LIDOCAINE HCL [Suspect]
     Active Substance: LIDOCAINE HYDROCHLORIDE
     Indication: PAIN MANAGEMENT
     Dosage: LIDOCAINE DRIP
  4. LEVETIRACETAM. [Concomitant]
     Active Substance: LEVETIRACETAM
     Indication: PAIN MANAGEMENT
     Dosage: 1000 MILLIGRAM, BID, ON THE THIRD DAY OF ADMISSION IV
     Route: 042
  5. HYDROMORPHONE [Concomitant]
     Active Substance: HYDROMORPHONE
     Indication: PAIN MANAGEMENT
     Dosage: HYDROMORPHONE PCA PATIENT?CONTROLLED ANALGESIA
  6. METHOCARBAMOL. [Concomitant]
     Active Substance: METHOCARBAMOL
     Indication: PAIN MANAGEMENT
     Dosage: UNK
  7. LEVETIRACETAM. [Concomitant]
     Active Substance: LEVETIRACETAM
     Dosage: 2000 MILLIGRAM, BID
     Route: 042
  8. KETAMINE [Suspect]
     Active Substance: KETAMINE
     Indication: PAIN MANAGEMENT
     Dosage: DRIP
  9. KETOROLAC [Concomitant]
     Active Substance: KETOROLAC TROMETHAMINE
     Indication: PAIN MANAGEMENT
     Dosage: UNK
  10. PHENYTOIN. [Concomitant]
     Active Substance: PHENYTOIN
     Indication: PAIN MANAGEMENT
     Dosage: UNK
  11. LEVETIRACETAM. [Concomitant]
     Active Substance: LEVETIRACETAM
     Indication: PAIN MANAGEMENT
     Dosage: 750 MILLIGRAM, BID
     Route: 048
  12. METHYLPREDNISOLONE. [Concomitant]
     Active Substance: METHYLPREDNISOLONE
     Indication: PAIN MANAGEMENT
     Dosage: UNK

REACTIONS (1)
  - Hallucination [Unknown]
